FAERS Safety Report 10098129 (Version 1)
Quarter: 2014Q2

REPORT INFORMATION
  Report Type: Other
  Country: GB (occurrence: GB)
  Receive Date: 20140423
  Receipt Date: 20140423
  Transmission Date: 20141212
  Serious: Yes (Life-Threatening)
  Sender: FDA-Public Use
  Company Number: GB-TARO PHARMACEUTICALS U.S.A., INC-2014SUN00883

PATIENT
  Age: 44 Year
  Sex: Female
  Weight: 82 kg

DRUGS (2)
  1. WARFARIN [Suspect]
     Indication: PRODUCT USED FOR UNKNOWN INDICATION
     Route: 065
  2. DAFLON [Interacting]
     Indication: VENOUS PRESSURE
     Dosage: 50 MG, BID
     Route: 048
     Dates: start: 20140309, end: 20140327

REACTIONS (2)
  - Drug interaction [Unknown]
  - International normalised ratio increased [Recovered/Resolved]
